FAERS Safety Report 6757916-0 (Version None)
Quarter: 2010Q2

REPORT INFORMATION
  Report Type: 
  Country: None (occurrence: None)
  Receive Date: 20100607
  Receipt Date: 20100524
  Transmission Date: 20101027
  Serious: Yes (Death, Other)
  Sender: FDA-Public Use
  Company Number: US-GENZYME-CLOF-1000952

PATIENT
  Sex: Female
  Weight: 9.3 kg

DRUGS (16)
  1. CLOLAR [Suspect]
     Indication: ACUTE LEUKAEMIA
     Dosage: 19.8 MG, QDX5
     Route: 042
     Dates: start: 20090713, end: 20090717
  2. GANCICLOVIR [Concomitant]
     Indication: ANTIVIRAL PROPHYLAXIS
     Dosage: 45 MG, UNK
     Route: 042
     Dates: start: 20090804, end: 20090818
  3. GANCICLOVIR [Concomitant]
     Dosage: 50 MG, UNK
     Route: 042
     Dates: start: 20090826, end: 20090912
  4. MICAFUNGIN [Concomitant]
     Indication: ANTIFUNGAL PROPHYLAXIS
     Dosage: 26 MG, UNK
     Route: 042
     Dates: start: 20090815, end: 20090912
  5. PENTAMIDINE ISETHIONATE [Concomitant]
     Indication: PROPHYLAXIS
     Dosage: 37 MG, UNK
     Route: 042
     Dates: start: 20090904, end: 20090912
  6. IMMUNE GLOBULIN NOS [Concomitant]
     Indication: DRUG USE FOR UNKNOWN INDICATION
     Dosage: 5 G, UNK
     Route: 042
     Dates: start: 20090817, end: 20090912
  7. FOSCARNET [Concomitant]
     Indication: ANTIVIRAL PROPHYLAXIS
     Dosage: 820 MG, UNK
     Route: 042
     Dates: start: 20090818, end: 20090826
  8. MYCOPHENOLATE MOFETIL [Concomitant]
     Indication: PROPHYLAXIS AGAINST GRAFT VERSUS HOST DISEASE
     Dosage: 270 MG, UNK
     Route: 042
     Dates: start: 20090814, end: 20090912
  9. CYTOGAM [Concomitant]
     Indication: ANTIVIRAL PROPHYLAXIS
     Dosage: 3600 MG, UNK
     Route: 042
     Dates: start: 20090814, end: 20090821
  10. CYTOGAM [Concomitant]
     Dosage: 2400 MG, UNK
     Route: 042
     Dates: start: 20090825, end: 20090826
  11. CYTOGAM [Concomitant]
     Dosage: 4800 MG, UNK
     Route: 042
     Dates: start: 20090826, end: 20090912
  12. METHYLPREDNISOLONE [Concomitant]
     Indication: PROPHYLAXIS AGAINST GRAFT VERSUS HOST DISEASE
     Dosage: 90 MG, UNK
     Route: 042
     Dates: start: 20090827, end: 20090829
  13. METHYLPREDNISOLONE [Concomitant]
     Dosage: 100 MG, UNK
     Route: 042
     Dates: start: 20090829, end: 20090830
  14. METHYLPREDNISOLONE [Concomitant]
     Dosage: 4.5 MG, UNK
     Route: 042
     Dates: start: 20090831, end: 20090905
  15. METHYLPREDNISOLONE [Concomitant]
     Dosage: 2.5 MG, UNK
     Route: 042
     Dates: start: 20090905, end: 20090907
  16. METHYLPREDNISOLONE [Concomitant]
     Dosage: 18 MG, UNK
     Route: 042
     Dates: start: 20090911, end: 20090912

REACTIONS (5)
  - EMPHYSEMA [None]
  - PNEUMONITIS [None]
  - PNEUMOTHORAX SPONTANEOUS TENSION [None]
  - PULMONARY HYPERTENSION [None]
  - PULMONARY VENO-OCCLUSIVE DISEASE [None]
